FAERS Safety Report 11839285 (Version 1)
Quarter: 2015Q4

REPORT INFORMATION
  Report Type: Spontaneous
  Country: US (occurrence: US)
  Receive Date: 20151216
  Receipt Date: 20151216
  Transmission Date: 20160305
  Serious: No
  Sender: FDA-Public Use
  Company Number: US-TEVA-605919USA

PATIENT
  Sex: Female

DRUGS (19)
  1. LOSARTAN POTASSIUM W/HYDROCHLOROTHIAZIDE [Concomitant]
     Active Substance: HYDROCHLOROTHIAZIDE\LOSARTAN POTASSIUM
  2. CITALOPRAM [Concomitant]
     Active Substance: CITALOPRAM HYDROBROMIDE
  3. WARFARIN [Concomitant]
     Active Substance: WARFARIN
  4. OXYBUTYNIN [Suspect]
     Active Substance: OXYBUTYNIN
     Dosage: 10 MILLIGRAM DAILY;
     Route: 048
     Dates: start: 20150213, end: 20150401
  5. DULERA [Concomitant]
     Active Substance: FORMOTEROL FUMARATE DIHYDRATE\MOMETASONE FUROATE
     Route: 055
  6. OMEGA 3 FISH OIL [Concomitant]
     Active Substance: FISH OIL\OMEGA-3 FATTY ACIDS
  7. OXYBUTYNIN [Suspect]
     Active Substance: OXYBUTYNIN
     Indication: HYPERTONIC BLADDER
     Dosage: 10 MILLIGRAM DAILY;
     Route: 048
     Dates: start: 20150519, end: 20150630
  8. SINGULAIR [Concomitant]
     Active Substance: MONTELUKAST SODIUM
  9. ISOSORBIDE DINITRATE. [Concomitant]
     Active Substance: ISOSORBIDE DINITRATE
  10. ALBUTEROL. [Concomitant]
     Active Substance: ALBUTEROL
  11. COQ10 [Concomitant]
     Active Substance: UBIDECARENONE
  12. MAGNESIUM [Concomitant]
     Active Substance: MAGNESIUM
  13. SIMVASTATIN. [Concomitant]
     Active Substance: SIMVASTATIN
     Dates: start: 20090518
  14. OXYBUTYNIN [Suspect]
     Active Substance: OXYBUTYNIN
     Dosage: 10 MILLIGRAM DAILY;
     Route: 048
     Dates: start: 20150404, end: 20150515
  15. VESICARE [Suspect]
     Active Substance: SOLIFENACIN SUCCINATE
     Indication: HYPERTONIC BLADDER
     Dosage: 5 MILLIGRAM DAILY;
     Route: 048
     Dates: start: 20150702, end: 20150804
  16. ESTRADIOL. [Concomitant]
     Active Substance: ESTRADIOL
  17. VITAMIN D3 [Concomitant]
     Active Substance: CHOLECALCIFEROL
  18. ASPIRIN. [Concomitant]
     Active Substance: ASPIRIN
  19. TYLENOL EXTRA STRENGTH [Concomitant]
     Active Substance: ACETAMINOPHEN

REACTIONS (2)
  - Pharyngeal oedema [Recovered/Resolved]
  - Cough [Recovered/Resolved]
